FAERS Safety Report 5072537-6 (Version None)
Quarter: 2006Q3

REPORT INFORMATION
  Report Type: 
  Country: None (occurrence: None)
  Receive Date: 20060807
  Receipt Date: 20060707
  Transmission Date: 20061208
  Serious: Yes (Hospitalization, Disabling, Other)
  Sender: FDA-Public Use
  Company Number: US-MERCK-0607USA00937

PATIENT
  Age: 47 Year
  Sex: Female
  Weight: 38 kg

DRUGS (6)
  1. FOSAMAX [Suspect]
     Indication: OSTEOPOROSIS
     Route: 048
     Dates: start: 19960101, end: 19980101
  2. VITAMINS (UNSPECIFIED) [Concomitant]
     Indication: ROUTINE HEALTH MAINTENANCE
     Route: 048
     Dates: start: 19960101
  3. PLAQUENIL [Concomitant]
     Indication: SYSTEMIC LUPUS ERYTHEMATOSUS
     Route: 048
     Dates: start: 19820101
  4. LEVOTHROID [Concomitant]
     Indication: HYPOTHYROIDISM
     Route: 048
     Dates: start: 19780101
  5. PREDNISONE [Concomitant]
     Indication: HEPATITIS
     Route: 048
     Dates: start: 19820101
  6. FLEET (MINERAL OIL) [Concomitant]
     Indication: CONSTIPATION
     Route: 054
     Dates: start: 19980101

REACTIONS (19)
  - ANXIETY [None]
  - CONVULSION [None]
  - CYTOMEGALOVIRUS OESOPHAGITIS [None]
  - FALL [None]
  - GASTROOESOPHAGEAL REFLUX DISEASE [None]
  - HEPATIC CIRRHOSIS [None]
  - LYMPHOPROLIFERATIVE DISORDER [None]
  - MENINGITIS [None]
  - MOUTH ULCERATION [None]
  - NAUSEA [None]
  - NEPHROLITHIASIS [None]
  - OSTEONECROSIS [None]
  - PAIN [None]
  - PELVIC FRACTURE [None]
  - PRURITUS [None]
  - RENAL FAILURE [None]
  - RETINITIS [None]
  - SLEEP DISORDER [None]
  - STOMATITIS [None]
